FAERS Safety Report 12425554 (Version 2)
Quarter: 2016Q2

REPORT INFORMATION
  Report Type: Spontaneous
  Country: DE (occurrence: DE)
  Receive Date: 20160601
  Receipt Date: 20160616
  Transmission Date: 20160815
  Serious: Yes (Death)
  Sender: FDA-Public Use
  Company Number: PHHY2016DE075085

PATIENT
  Age: 51 Year
  Sex: Female
  Weight: 67 kg

DRUGS (4)
  1. CONCOR [Concomitant]
     Active Substance: BISOPROLOL FUMARATE
     Indication: TACHYCARDIA
     Dosage: 10 MG, QD
     Route: 048
     Dates: start: 2011
  2. REMERGIL [Concomitant]
     Active Substance: MIRTAZAPINE
     Indication: DEPRESSION
     Dosage: 30 MG, QD
     Route: 048
  3. LYRICA [Concomitant]
     Active Substance: PREGABALIN
     Indication: DEPRESSION
     Dosage: 125 MG, QD
     Route: 048
  4. AFINITOR [Suspect]
     Active Substance: EVEROLIMUS
     Indication: BREAST CANCER METASTATIC
     Dosage: 10 MG, QD (DAILY)
     Route: 048
     Dates: start: 20160427, end: 20160515

REACTIONS (13)
  - Fatigue [Fatal]
  - Pyrexia [Fatal]
  - Restrictive pulmonary disease [Fatal]
  - Acute respiratory distress syndrome [Fatal]
  - Pleural effusion [Fatal]
  - Malaise [Fatal]
  - Alveolitis [Fatal]
  - Pulmonary oedema [Fatal]
  - Cough [Fatal]
  - Dyspnoea [Fatal]
  - Prothrombin time prolonged [Unknown]
  - Atypical pneumonia [Fatal]
  - Pneumonitis [Fatal]

NARRATIVE: CASE EVENT DATE: 20160518
